FAERS Safety Report 15075338 (Version 1)
Quarter: 2018Q2

REPORT INFORMATION
  Report Type: Spontaneous
  Country: US (occurrence: US)
  Receive Date: 20180627
  Receipt Date: 20180627
  Transmission Date: 20180711
  Serious: Yes (Other)
  Sender: FDA-Public Use
  Company Number: US-SAOL THERAPEUTICS-2018SAO00155

PATIENT
  Age: 42 Year
  Sex: Male
  Weight: 86.76 kg

DRUGS (12)
  1. CLOPIDOGREL BISULFATE. [Concomitant]
     Active Substance: CLOPIDOGREL BISULFATE
  2. ASCORBIC ACID. [Concomitant]
     Active Substance: ASCORBIC ACID
  3. ALBUTEROL. [Concomitant]
     Active Substance: ALBUTEROL
  4. VENLAFAXINE HCL [Concomitant]
     Active Substance: VENLAFAXINE HYDROCHLORIDE
  5. NORVASC [Concomitant]
     Active Substance: AMLODIPINE BESYLATE
  6. BACLOFEN. [Suspect]
     Active Substance: BACLOFEN
     Indication: HEMIPLEGIA
     Dosage: 160.8 ?G, \DAY
     Route: 037
     Dates: start: 20180207
  7. VITAMIN B12 [Concomitant]
     Active Substance: CYANOCOBALAMIN
  8. BACLOFEN. [Suspect]
     Active Substance: BACLOFEN
     Indication: MUSCLE SPASTICITY
     Dosage: 251.8 ?G, \DAY
     Route: 037
     Dates: start: 20160614
  9. BACLOFEN. [Suspect]
     Active Substance: BACLOFEN
     Dosage: 7.4 ?G, \HOUR
     Route: 037
     Dates: start: 20180219
  10. OMEPRAZOLE. [Concomitant]
     Active Substance: OMEPRAZOLE
  11. VITAMIN D3 [Concomitant]
     Active Substance: CHOLECALCIFEROL
  12. BACLOFEN. [Suspect]
     Active Substance: BACLOFEN
     Indication: CEREBROVASCULAR ACCIDENT
     Dosage: 133.9 ?G, \DAY
     Route: 037
     Dates: start: 20180129

REACTIONS (4)
  - Paralysis [Unknown]
  - Pain [Recovered/Resolved]
  - Therapy non-responder [Recovered/Resolved]
  - Drug withdrawal syndrome [Recovered/Resolved]

NARRATIVE: CASE EVENT DATE: 20180126
